FAERS Safety Report 5347984-5 (Version None)
Quarter: 2007Q2

REPORT INFORMATION
  Report Type: 
  Country: None (occurrence: None)
  Receive Date: 20070606
  Receipt Date: 20070531
  Transmission Date: 20071010
  Serious: Yes (Hospitalization)
  Sender: FDA-Public Use
  Company Number: US-PURDUE-USA_2007_0027452

PATIENT
  Age: 54 Year
  Sex: Female
  Weight: 76 kg

DRUGS (29)
  1. OXYCONTIN [Suspect]
     Indication: PAIN
     Dosage: 60 MG, PRN
     Route: 048
     Dates: start: 20051101
  2. FENTANYL [Suspect]
     Indication: BREAKTHROUGH PAIN
     Dosage: 800 MCG, PRN
     Route: 002
     Dates: start: 20061122, end: 20070228
  3. DILAUDID [Suspect]
     Indication: PAIN
     Dosage: 6 MG, DAILY
     Route: 048
     Dates: start: 20060301
  4. DURAGESIC-100 [Suspect]
     Indication: PAIN
     Dosage: 50 MCG, Q1H
     Route: 048
  5. NITROQUICK [Concomitant]
     Indication: DRUG USE FOR UNKNOWN INDICATION
     Dosage: UNK, UNK
     Dates: start: 20051101
  6. LEXAPRO [Concomitant]
     Indication: ANXIETY
     Dosage: UNK, UNK
     Dates: start: 20051101
  7. DIOVAN [Concomitant]
     Indication: DRUG USE FOR UNKNOWN INDICATION
     Dosage: UNK, UNK
     Dates: start: 20061001
  8. ZOCOR [Concomitant]
     Indication: DRUG USE FOR UNKNOWN INDICATION
     Dosage: UNK, UNK
     Dates: start: 20010101
  9. PROVIGIL [Concomitant]
     Indication: FATIGUE
     Dates: start: 20030101
  10. REGLAN [Concomitant]
     Indication: DRUG USE FOR UNKNOWN INDICATION
     Dates: start: 20060301
  11. ZANAFLEX [Concomitant]
     Indication: MUSCLE SPASMS
     Dosage: UNK, UNK
     Dates: start: 19900101
  12. TEMAZEPAM [Concomitant]
     Indication: INSOMNIA
     Dosage: UNK, UNK
     Dates: start: 19900101
  13. LASIX [Concomitant]
     Indication: DRUG USE FOR UNKNOWN INDICATION
     Dosage: UNK, UNK
     Dates: start: 20010101
  14. VISTARIL [Concomitant]
     Indication: NAUSEA
     Dosage: UNK, UNK
     Dates: start: 20051101
  15. ECOTRIN [Concomitant]
     Indication: DRUG USE FOR UNKNOWN INDICATION
     Dosage: UNK, UNK
     Dates: start: 20051101
  16. ESTRATEST [Concomitant]
     Indication: DRUG USE FOR UNKNOWN INDICATION
     Dosage: UNK, UNK
     Dates: start: 20060101
  17. ADDERALL 10 [Concomitant]
     Indication: DRUG USE FOR UNKNOWN INDICATION
     Dosage: UNK, UNK
     Dates: start: 20020101
  18. DESYREL [Concomitant]
     Indication: DRUG USE FOR UNKNOWN INDICATION
     Dosage: UNK, UNK
     Dates: start: 20010101
  19. ZELNORM [Concomitant]
     Indication: DRUG USE FOR UNKNOWN INDICATION
     Dosage: UNK, UNK
     Dates: start: 20061001
  20. NEURONTIN [Concomitant]
     Indication: DRUG USE FOR UNKNOWN INDICATION
     Dosage: UNK, UNK
     Dates: start: 20061001
  21. MAXALT [Concomitant]
     Indication: DRUG USE FOR UNKNOWN INDICATION
     Dosage: UNK, UNK
     Dates: start: 20020101
  22. PHENERGAN ^NATRAPHARM^ [Concomitant]
     Indication: DRUG USE FOR UNKNOWN INDICATION
     Dosage: UNK, UNK
     Dates: start: 20020101
  23. AXERT [Concomitant]
     Indication: DRUG USE FOR UNKNOWN INDICATION
     Dosage: UNK, UNK
     Dates: start: 20020101
  24. RELPAX [Concomitant]
     Indication: DRUG USE FOR UNKNOWN INDICATION
     Dosage: UNK, UNK
     Dates: start: 20020101
  25. CHROMIUM [Concomitant]
     Indication: DRUG USE FOR UNKNOWN INDICATION
     Dosage: UNK, UNK
     Dates: start: 20050101
  26. AMOXICILLIN [Concomitant]
     Indication: DRUG USE FOR UNKNOWN INDICATION
     Dosage: UNK, UNK
     Dates: start: 20061101
  27. NORTRIPTYLINE HCL [Concomitant]
     Indication: INSOMNIA
     Dosage: UNK, UNK
     Dates: start: 20070102
  28. MEDIFAST [Concomitant]
     Indication: DRUG USE FOR UNKNOWN INDICATION
     Dosage: UNK, UNK
  29. CHANTIX PACK [Concomitant]
     Indication: DRUG USE FOR UNKNOWN INDICATION
     Dosage: UNK, UNK

REACTIONS (7)
  - BLOOD PRESSURE IMMEASURABLE [None]
  - MENTAL STATUS CHANGES [None]
  - MULTIPLE DRUG OVERDOSE [None]
  - PNEUMONIA [None]
  - RESPIRATORY DISTRESS [None]
  - SOMNOLENCE [None]
  - TOXIC INDUCED ENCEPHALOPATHY [None]
